FAERS Safety Report 6526623-1 (Version None)
Quarter: 2010Q1

REPORT INFORMATION
  Report Type: 
  Country: None (occurrence: None)
  Receive Date: 20100105
  Receipt Date: 20091228
  Transmission Date: 20100710
  Serious: Yes (Other)
  Sender: FDA-Public Use
  Company Number: CA-ROCHE-676967

PATIENT

DRUGS (6)
  1. ISOTRETINOIN [Suspect]
     Indication: DRUG USE FOR UNKNOWN INDICATION
     Route: 064
  2. CILAZAPRIL [Suspect]
     Indication: DRUG USE FOR UNKNOWN INDICATION
     Route: 064
  3. BROMAZEPAM [Suspect]
     Indication: DRUG USE FOR UNKNOWN INDICATION
     Route: 064
  4. CLONAZEPAM [Suspect]
     Indication: DRUG USE FOR UNKNOWN INDICATION
     Route: 064
  5. DIAZEPAM [Suspect]
     Indication: DRUG USE FOR UNKNOWN INDICATION
     Route: 064
  6. ACITRETIN [Suspect]
     Indication: DRUG USE FOR UNKNOWN INDICATION
     Route: 064

REACTIONS (3)
  - ABORTION SPONTANEOUS [None]
  - CONGENITAL ANOMALY [None]
  - LIVE BIRTH [None]
